FAERS Safety Report 19159724 (Version 2)
Quarter: 2021Q2

REPORT INFORMATION
  Report Type: Spontaneous
  Country: US (occurrence: US)
  Receive Date: 20210420
  Receipt Date: 20210422
  Transmission Date: 20210717
  Serious: Yes (Death)
  Sender: FDA-Public Use
  Company Number: US-PFIZER INC-2021410657

PATIENT
  Age: 32 Year
  Sex: Female
  Weight: 53.5 kg

DRUGS (5)
  1. GENTAMICIN SULFATE. [Suspect]
     Active Substance: GENTAMICIN SULFATE
     Dosage: 80 MG
     Route: 030
  2. GENTAMICIN SULFATE. [Suspect]
     Active Substance: GENTAMICIN SULFATE
     Dosage: 50 MG
     Route: 042
     Dates: start: 19850926
  3. GENTAMICIN SULFATE. [Suspect]
     Active Substance: GENTAMICIN SULFATE
     Dosage: 50 MG (ON SEPTEMBER 1,3 AND 9)
     Route: 042
  4. GENTAMICIN SULFATE. [Suspect]
     Active Substance: GENTAMICIN SULFATE
     Indication: INFECTION
     Dosage: 2 MG/KG
     Route: 033
     Dates: start: 19850829
  5. GENTAMICIN SULFATE. [Suspect]
     Active Substance: GENTAMICIN SULFATE
     Dosage: 60 MG (ON SEPTEMBER 5 AND 6)
     Route: 042

REACTIONS (3)
  - Vertigo [Not Recovered/Not Resolved]
  - Gait disturbance [Fatal]
  - Product use issue [Unknown]

NARRATIVE: CASE EVENT DATE: 19850829
